FAERS Safety Report 18641774 (Version 1)
Quarter: 2020Q4

REPORT INFORMATION
  Report Type: Spontaneous
  Country: US (occurrence: US)
  Receive Date: 20201218
  Receipt Date: 20201218
  Transmission Date: 20210114
  Serious: Yes (Hospitalization)
  Sender: FDA-Public Use
  Company Number: None

PATIENT
  Age: 70 Year
  Sex: Male
  Weight: 146 kg

DRUGS (2)
  1. BACLOFEN (BACLOFEN 10MG TAB) [Suspect]
     Active Substance: BACLOFEN
     Indication: MYALGIA
     Dates: start: 20200902, end: 20200909
  2. ACETAMINOPHEN/HYDROCODONE (HYDROCODONE 5MG/ACETAMINOPHEN 325MG TAB) [Suspect]
     Active Substance: ACETAMINOPHEN\HYDROCODONE
     Indication: NECK PAIN
     Dates: start: 20200902, end: 20200908

REACTIONS (5)
  - Dizziness [None]
  - Toxicity to various agents [None]
  - Nausea [None]
  - Vomiting [None]
  - Confusional state [None]

NARRATIVE: CASE EVENT DATE: 20200909
